FAERS Safety Report 10089851 (Version 1)
Quarter: 2014Q2

REPORT INFORMATION
  Report Type: Spontaneous
  Country: US (occurrence: US)
  Receive Date: 20140421
  Receipt Date: 20140421
  Transmission Date: 20141212
  Serious: No
  Sender: FDA-Public Use
  Company Number: US-ABBVIE-14P-163-1208800-00

PATIENT
  Age: 17 Year
  Sex: Female
  Weight: 65 kg

DRUGS (5)
  1. LUPRON DEPOT-PED [Suspect]
     Indication: MENSTRUAL CYCLE MANAGEMENT
     Route: 030
     Dates: start: 201401, end: 201401
  2. CASPOFUNGIN [Concomitant]
     Indication: PRODUCT USED FOR UNKNOWN INDICATION
  3. PREVACID [Concomitant]
     Indication: PRODUCT USED FOR UNKNOWN INDICATION
  4. BACTRIM [Concomitant]
     Indication: PRODUCT USED FOR UNKNOWN INDICATION
  5. MELATONIN [Concomitant]
     Indication: PRODUCT USED FOR UNKNOWN INDICATION

REACTIONS (2)
  - Off label use [Not Recovered/Not Resolved]
  - Wrong drug administered [Recovered/Resolved]
